FAERS Safety Report 22942767 (Version 2)
Quarter: 2023Q4

REPORT INFORMATION
  Report Type: Spontaneous
  Country: DE (occurrence: DE)
  Receive Date: 20230914
  Receipt Date: 20231018
  Transmission Date: 20240110
  Serious: Yes (Life-Threatening, Hospitalization)
  Sender: FDA-Public Use
  Company Number: DE-TEVA-2023-DE-2925632

PATIENT
  Age: 60 Year
  Sex: Female

DRUGS (7)
  1. HYDROCORTISONE [Suspect]
     Active Substance: HYDROCORTISONE
     Indication: Anaphylactic shock
     Route: 065
  2. CORTISONE [Suspect]
     Active Substance: CORTISONE
     Indication: Anaphylactic shock
     Route: 065
  3. DEXAMETHASONE [Suspect]
     Active Substance: DEXAMETHASONE
     Indication: Anaphylactic shock
     Route: 042
  4. SUPRARENIN [Concomitant]
     Active Substance: EPINEPHRINE
     Indication: Anaphylactic shock
     Route: 030
  5. SUPRARENIN [Concomitant]
     Active Substance: EPINEPHRINE
     Route: 042
  6. SUPRARENIN [Concomitant]
     Active Substance: EPINEPHRINE
     Route: 050
  7. Jonosteril [Concomitant]
     Indication: Anaphylactic shock
     Route: 042

REACTIONS (1)
  - Drug ineffective [Unknown]
